FAERS Safety Report 7350913-6 (Version None)
Quarter: 2011Q1

REPORT INFORMATION
  Report Type: 
  Country: None (occurrence: None)
  Receive Date: 20110314
  Receipt Date: 20110304
  Transmission Date: 20110831
  Serious: Yes (Hospitalization)
  Sender: FDA-Public Use
  Company Number: US-JNJFOC-20110106989

PATIENT
  Sex: Female
  Weight: 72.58 kg

DRUGS (12)
  1. SYNTHROID [Concomitant]
     Indication: THYROID DISORDER
     Route: 048
  2. CHLOR-TRIMETON [Concomitant]
     Dosage: 1 TABLET TWICE DAILYAS NEEDED
     Route: 048
  3. ALEVE [Concomitant]
     Dosage: 1 CAPSULE EVERY 12 HOURS AS NEEDED
     Route: 048
  4. LEVAQUIN [Suspect]
     Route: 048
  5. FISH OIL [Concomitant]
     Dosage: 1 CAPSULE EVERY OTHER DAY
     Route: 048
  6. LEVAQUIN [Suspect]
     Indication: PRODUCT USED FOR UNKNOWN INDICATION
     Route: 048
  7. METRONIDAZOLE [Suspect]
     Indication: PRODUCT USED FOR UNKNOWN INDICATION
     Route: 042
  8. LEVAQUIN [Suspect]
     Route: 048
  9. B VITAMIN COMPLEX [Concomitant]
     Dosage: 1 TABLET
     Route: 048
  10. BIOTIN [Concomitant]
     Dosage: EVERY OTHER DAY
     Route: 048
  11. LEVAQUIN [Suspect]
     Route: 042
  12. CYANOCOBALAMIN [Concomitant]
     Dosage: 1 TABLET DAILY
     Route: 048

REACTIONS (9)
  - BLOOD PRESSURE DECREASED [None]
  - PSEUDOMEMBRANOUS COLITIS [None]
  - CHILLS [None]
  - MALAISE [None]
  - COLITIS ISCHAEMIC [None]
  - HYPOAESTHESIA [None]
  - DIZZINESS [None]
  - PYREXIA [None]
  - ANAPHYLACTIC SHOCK [None]
